FAERS Safety Report 6197318-1 (Version None)
Quarter: 2009Q2

REPORT INFORMATION
  Report Type: 
  Country: None (occurrence: None)
  Receive Date: 20090521
  Receipt Date: 20090513
  Transmission Date: 20091009
  Serious: Yes (Hospitalization)
  Sender: FDA-Public Use
  Company Number: JP-EISAI INC.-E2090-00731-SPO-JP

PATIENT
  Age: 24 Year
  Sex: Male

DRUGS (2)
  1. EXCEGRAN [Suspect]
     Indication: EPILEPSY
     Route: 048
     Dates: start: 20050101
  2. DEPAKENE [Concomitant]
     Dosage: UNKNOWN

REACTIONS (1)
  - RHABDOMYOLYSIS [None]
